FAERS Safety Report 11466643 (Version 2)
Quarter: 2015Q4

REPORT INFORMATION
  Report Type: Spontaneous
  Country: US (occurrence: US)
  Receive Date: 20150907
  Receipt Date: 20151021
  Transmission Date: 20160304
  Serious: No
  Sender: FDA-Public Use
  Company Number: US-PFIZER INC-2015282947

PATIENT
  Age: 63 Year
  Sex: Male
  Weight: 84 kg

DRUGS (6)
  1. AMLODIPINE BESYLATE. [Concomitant]
     Active Substance: AMLODIPINE BESYLATE
     Dosage: 10 MG, DAILY
     Route: 048
  2. LOSARTAN POTASSIUM. [Concomitant]
     Active Substance: LOSARTAN POTASSIUM
     Dosage: 50 MG, AS NEEDED
     Route: 048
  3. TOBRAMYCIN AND DEXAMETHASONE [Concomitant]
     Active Substance: DEXAMETHASONE\TOBRAMYCIN
     Dosage: UNK
  4. SUTENT [Suspect]
     Active Substance: SUNITINIB MALATE
     Indication: METASTATIC RENAL CELL CARCINOMA
     Dosage: 50 MG, CYCLIC (4 WEEKS ON/2 WEEKS OFF)
     Dates: start: 20150416
  5. SIMVASTATIN. [Concomitant]
     Active Substance: SIMVASTATIN
     Dosage: 20 MG, 1X/DAY (TAKE 1 TAB BY MOUTH NIGHTLY)
     Route: 048
  6. OLANZAPINE. [Concomitant]
     Active Substance: OLANZAPINE
     Dosage: 10 MG, DAILY

REACTIONS (10)
  - Cough [Unknown]
  - Gastrooesophageal reflux disease [Unknown]
  - Blood pressure increased [Recovering/Resolving]
  - Skin disorder [Unknown]
  - Disease progression [Unknown]
  - Depressed mood [Unknown]
  - Fatigue [Unknown]
  - Diarrhoea [Unknown]
  - Rash [Recovered/Resolved]
  - Metastatic renal cell carcinoma [Unknown]
